FAERS Safety Report 21730818 (Version 1)
Quarter: 2022Q4

REPORT INFORMATION
  Report Type: Spontaneous
  Country: US (occurrence: US)
  Receive Date: 20221215
  Receipt Date: 20221215
  Transmission Date: 20230112
  Serious: No
  Sender: FDA-Public Use
  Company Number: US-CELGENE-USA-20211102680

PATIENT
  Age: 6 Decade
  Sex: Male

DRUGS (1)
  1. ZEPOSIA [Suspect]
     Active Substance: OZANIMOD HYDROCHLORIDE
     Indication: Crohn^s disease
     Dosage: .92 MILLIGRAM
     Route: 048
     Dates: start: 202103

REACTIONS (1)
  - Crohn^s disease [Unknown]
